FAERS Safety Report 5176939-9 (Version None)
Quarter: 2006Q4

REPORT INFORMATION
  Report Type: 
  Country: None (occurrence: None)
  Receive Date: 20061207
  Receipt Date: 20061127
  Transmission Date: 20070319
  Serious: Yes (Death)
  Sender: FDA-Public Use
  Company Number: 000#8#2006-00467

PATIENT
  Age: 61 Year
  Sex: Male

DRUGS (8)
  1. ISOSORBIDE MONONITRATE [Suspect]
     Indication: ERECTILE DYSFUNCTION
     Dosage: DOSE UNKNOWN,
  2. SILDENAFIL CITRATE [Suspect]
     Indication: ERECTILE DYSFUNCTION
     Dosage: ORAL
     Route: 048
  3. DIGITOXIN TAB [Suspect]
  4. ALLOPURINOL [Suspect]
  5. RANITIDINE [Suspect]
  6. FLAVONOID [Suspect]
  7. DIOSMIN (DIOSMIN) [Suspect]
  8. PHENPROCOUMON (PHENPROCOUMON) [Suspect]

REACTIONS (9)
  - AORTIC DISSECTION [None]
  - ATRIAL FIBRILLATION [None]
  - BLOOD LACTATE DEHYDROGENASE INCREASED [None]
  - BLOOD PRESSURE DIASTOLIC DECREASED [None]
  - BLOOD PRESSURE SYSTOLIC INCREASED [None]
  - DIARRHOEA [None]
  - INTERNATIONAL NORMALISED RATIO INCREASED [None]
  - INTESTINAL ISCHAEMIA [None]
  - VENTRICULAR HYPERTROPHY [None]
